FAERS Safety Report 19114271 (Version 1)
Quarter: 2021Q2

REPORT INFORMATION
  Report Type: Spontaneous
  Country: US (occurrence: US)
  Receive Date: 20210409
  Receipt Date: 20210409
  Transmission Date: 20210717
  Serious: No
  Sender: FDA-Public Use
  Company Number: US-ALLERGAN-2108690US

PATIENT
  Sex: Female

DRUGS (4)
  1. PROGESTERONE. [Concomitant]
     Active Substance: PROGESTERONE
  2. LILETTA [Suspect]
     Active Substance: LEVONORGESTREL
     Indication: HEAVY MENSTRUAL BLEEDING
     Dosage: 52 MG, SINGLE
     Route: 015
     Dates: start: 20200909, end: 20201109
  3. TRANEXAMIC ACID. [Concomitant]
     Active Substance: TRANEXAMIC ACID
     Indication: HEAVY MENSTRUAL BLEEDING
     Dosage: 650 MG, TID
     Route: 048
     Dates: start: 20210205
  4. NATURE?THROID [Concomitant]
     Active Substance: THYROID, PORCINE
     Dosage: 3 GRAIN
     Route: 048

REACTIONS (3)
  - Device dislocation [Recovered/Resolved]
  - Uterine leiomyoma [Not Recovered/Not Resolved]
  - Off label use [Unknown]
